FAERS Safety Report 6790911-4 (Version None)
Quarter: 2010Q2

REPORT INFORMATION
  Report Type: 
  Country: None (occurrence: None)
  Receive Date: 20100624
  Receipt Date: 20100616
  Transmission Date: 20101027
  Serious: Yes (Other)
  Sender: FDA-Public Use
  Company Number: B0662068A

PATIENT
  Sex: Male

DRUGS (1)
  1. AUGMENTIN '125' [Suspect]
     Indication: DRUG USE FOR UNKNOWN INDICATION
     Route: 048
     Dates: start: 20100507

REACTIONS (3)
  - CONJUNCTIVAL HYPERAEMIA [None]
  - GENERALISED ERYTHEMA [None]
  - LARYNGEAL OEDEMA [None]
